FAERS Safety Report 13449980 (Version 1)
Quarter: 2017Q2

REPORT INFORMATION
  Report Type: Spontaneous
  Country: US (occurrence: US)
  Receive Date: 20170417
  Receipt Date: 20170417
  Transmission Date: 20170830
  Serious: No
  Sender: FDA-Public Use
  Company Number: US-BION-20160420

PATIENT
  Age: 91 Year
  Sex: Female
  Weight: 58.97 kg

DRUGS (2)
  1. ALEVE [Suspect]
     Active Substance: NAPROXEN SODIUM
     Indication: ARTHRITIS
     Dosage: 1 DF
     Route: 048
  2. SULAR [Concomitant]
     Active Substance: NISOLDIPINE
     Indication: HYPERTENSION

REACTIONS (2)
  - Wrong technique in product usage process [Unknown]
  - Incorrect drug administration duration [Unknown]
